FAERS Safety Report 9366522 (Version 1)
Quarter: 2013Q2

REPORT INFORMATION
  Report Type: Spontaneous
  Country: GB (occurrence: None)
  Receive Date: 20130620
  Receipt Date: 20130620
  Transmission Date: 20140414
  Serious: Yes (Other)
  Sender: FDA-Public Use
  Company Number: GER/UKI/13/0030003

PATIENT
  Age: 74 Year
  Sex: Female
  Weight: 79.37 kg

DRUGS (2)
  1. ATORVASTATIN (ATORVASTATIN) [Suspect]
     Indication: BLOOD CHOLESTEROL INCREASED
     Dosage: 1 IN 1 D
     Route: 048
     Dates: start: 20121201, end: 20121214
  2. WARFARIN(WARFARIN) [Concomitant]

REACTIONS (2)
  - Dizziness [None]
  - Dysstasia [None]
